FAERS Safety Report 9223976 (Version 2)
Quarter: 2013Q3

REPORT INFORMATION
  Report Type: Spontaneous
  Country: US (occurrence: US)
  Receive Date: 20130411
  Receipt Date: 20130730
  Transmission Date: 20140515
  Serious: No
  Sender: FDA-Public Use
  Company Number: US-BIOGENIDEC-2013BI031130

PATIENT
  Age: 50 Year
  Sex: Female

DRUGS (2)
  1. TYSABRI [Suspect]
     Indication: MULTIPLE SCLEROSIS
     Route: 042
  2. TYSABRI [Suspect]
     Indication: MULTIPLE SCLEROSIS
     Route: 042
     Dates: start: 20130315

REACTIONS (10)
  - Somnolence [Recovered/Resolved]
  - Depression [Recovered/Resolved]
  - Weight increased [Unknown]
  - Stress [Unknown]
  - Crying [Unknown]
  - Decreased interest [Unknown]
  - Emotional disorder [Unknown]
  - Feeling of despair [Unknown]
  - Constipation [Unknown]
  - Fatigue [Not Recovered/Not Resolved]
